FAERS Safety Report 18883015 (Version 2)
Quarter: 2021Q1

REPORT INFORMATION
  Report Type: Spontaneous
  Country: US (occurrence: US)
  Receive Date: 20210211
  Receipt Date: 20210212
  Transmission Date: 20210420
  Serious: Yes (Death, Hospitalization)
  Sender: FDA-Public Use
  Company Number: US-PFIZER INC-2021123803

PATIENT
  Age: 60 Year
  Sex: Female

DRUGS (2)
  1. SIROLIMUS. [Suspect]
     Active Substance: SIROLIMUS
     Dosage: UNK (10?15 NG/ML)
  2. SIROLIMUS. [Suspect]
     Active Substance: SIROLIMUS
     Indication: GORHAM^S DISEASE
     Dosage: UNK (7?10 NG/ML WHICH WAS INCREASED TO A GOAL OF 10?15 NG/ ML)

REACTIONS (5)
  - Hypovolaemic shock [Fatal]
  - Respiratory failure [Fatal]
  - Drug ineffective for unapproved indication [Fatal]
  - Off label use [Fatal]
  - Septic shock [Fatal]
